FAERS Safety Report 25071004 (Version 2)
Quarter: 2025Q2

REPORT INFORMATION
  Report Type: Spontaneous
  Country: US (occurrence: US)
  Receive Date: 20250312
  Receipt Date: 20250407
  Transmission Date: 20250716
  Serious: Yes (Death)
  Sender: DOMPE FARMACEUTICI
  Company Number: US-FARMAPROD-202503-0709

PATIENT
  Age: 78 Year
  Sex: Male

DRUGS (23)
  1. OXERVATE [Suspect]
     Active Substance: CENEGERMIN-BKBJ
     Indication: Ulcerative keratitis
     Route: 047
     Dates: start: 20241108, end: 20250102
  2. OXERVATE [Suspect]
     Active Substance: CENEGERMIN-BKBJ
     Route: 047
     Dates: start: 20250117
  3. NITROGLYCERIN [Concomitant]
     Active Substance: NITROGLYCERIN
     Dates: start: 20250106
  4. NITROGLYCERIN [Concomitant]
     Active Substance: NITROGLYCERIN
     Dates: start: 20250106
  5. ACETAMINOPHEN\OXYCODONE HYDROCHLORIDE [Concomitant]
     Active Substance: ACETAMINOPHEN\OXYCODONE HYDROCHLORIDE
     Dosage: FOR 30 DAYS: 10-325 MG
     Dates: start: 20241125
  6. ACETAMINOPHEN\OXYCODONE HYDROCHLORIDE [Concomitant]
     Active Substance: ACETAMINOPHEN\OXYCODONE HYDROCHLORIDE
     Dates: start: 20241213
  7. GLIMEPIRIDE [Concomitant]
     Active Substance: GLIMEPIRIDE
     Dates: start: 20250117
  8. GLIMEPIRIDE [Concomitant]
     Active Substance: GLIMEPIRIDE
     Dates: start: 20241219
  9. FUROSEMIDE [Concomitant]
     Active Substance: FUROSEMIDE
  10. JARDIANCE [Concomitant]
     Active Substance: EMPAGLIFLOZIN
     Dates: start: 20250117
  11. FERROUS FUMARATE [Concomitant]
     Active Substance: FERROUS FUMARATE
  12. LISINOPRIL [Concomitant]
     Active Substance: LISINOPRIL
  13. XARELTO [Concomitant]
     Active Substance: RIVAROXABAN
     Dates: start: 20250102
  14. GABAPENTIN [Concomitant]
     Active Substance: GABAPENTIN
     Dates: start: 20250102
  15. METFORMIN HYDROCHLORIDE [Concomitant]
     Active Substance: METFORMIN HYDROCHLORIDE
     Dates: start: 20250117
  16. Eyemycin [Concomitant]
     Dates: start: 20241111
  17. METHOTREXATE [Concomitant]
     Active Substance: METHOTREXATE
     Dates: start: 20250123
  18. METHOTREXATE [Concomitant]
     Active Substance: METHOTREXATE
     Dates: start: 20250102
  19. ROSUVASTATIN CALCIUM [Concomitant]
     Active Substance: ROSUVASTATIN CALCIUM
     Dates: start: 20250117
  20. CARVEDILOL [Concomitant]
     Active Substance: CARVEDILOL
     Dates: start: 20250102
  21. CLOTRIMAZOLE BETAMETHASONE [Concomitant]
     Dates: start: 20241213
  22. PREDNISONE [Concomitant]
     Active Substance: PREDNISONE
     Dates: start: 20241105
  23. SOLIQUA 100/33 [Concomitant]
     Active Substance: INSULIN GLARGINE\LIXISENATIDE
     Dates: start: 20241213

REACTIONS (1)
  - Death [Fatal]

NARRATIVE: CASE EVENT DATE: 20250220
